FAERS Safety Report 6194695-2 (Version None)
Quarter: 2009Q2

REPORT INFORMATION
  Report Type: 
  Country: None (occurrence: None)
  Receive Date: 20090515
  Receipt Date: 20090508
  Transmission Date: 20091009
  Serious: Yes (Death)
  Sender: FDA-Public Use
  Company Number: 2009JP002044

PATIENT
  Age: 85 Year
  Sex: Female
  Weight: 35.3 kg

DRUGS (11)
  1. PROGRAF [Suspect]
     Indication: RHEUMATOID ARTHRITIS
     Dosage: 1.5 MG, UID/QD, ORAL
     Route: 048
     Dates: start: 20090101, end: 20090407
  2. METHOTREXATE [Suspect]
     Indication: RHEUMATOID ARTHRITIS
     Dosage: 4 MG, BID, ORAL
     Route: 048
     Dates: start: 20030701, end: 20070407
  3. PREDNISOLONE [Concomitant]
  4. NORVASC (AMLODIPINE) ORODISPERSIBLE CR TABLET [Concomitant]
  5. FAMOTER (ALUMINIUM GLYCINATE) [Concomitant]
  6. CALFINA (ALFACALCIDOL) [Concomitant]
  7. PROTECADIN (LAFUTIDINE) [Concomitant]
  8. BENET (RISEDRONATE SODIUM) [Concomitant]
  9. LIPITOR [Concomitant]
  10. DYDRENE (GLYCERYL TRINITRATE) [Concomitant]
  11. FERROMIA (FERROUS CITRATE) [Concomitant]

REACTIONS (5)
  - ACUTE RESPIRATORY FAILURE [None]
  - CONDITION AGGRAVATED [None]
  - INTERSTITIAL LUNG DISEASE [None]
  - PNEUMOCYSTIS JIROVECI PNEUMONIA [None]
  - RHEUMATOID LUNG [None]
